FAERS Safety Report 13415638 (Version 1)
Quarter: 2017Q2

REPORT INFORMATION
  Report Type: Report from Study
  Country: MX (occurrence: MX)
  Receive Date: 20170406
  Receipt Date: 20170406
  Transmission Date: 20170830
  Serious: Yes (Other)
  Sender: FDA-Public Use
  Company Number: MX-SA-2015SA153625

PATIENT
  Sex: Male
  Weight: 80 kg

DRUGS (1)
  1. COAPROVEL [Suspect]
     Active Substance: HYDROCHLOROTHIAZIDE\IRBESARTAN
     Indication: HYPERTENSION
     Dosage: ? ORAL TABLETS OF 150 MG OF IRBESARTAN + 12.5 MG OF HYDROCHLOROTHIAZIDE
     Route: 048
     Dates: start: 2014

REACTIONS (2)
  - Deafness [Not Recovered/Not Resolved]
  - Wrong technique in product usage process [Unknown]
